FAERS Safety Report 21922357 (Version 1)
Quarter: 2023Q1

REPORT INFORMATION
  Report Type: Spontaneous
  Country: US (occurrence: US)
  Receive Date: 20230128
  Receipt Date: 20230128
  Transmission Date: 20230418
  Serious: Yes (Other)
  Sender: FDA-Public Use
  Company Number: US-AUROBINDO-AUR-APL-2023-003402

PATIENT
  Sex: Male

DRUGS (2)
  1. CLOZAPINE [Suspect]
     Active Substance: CLOZAPINE
     Indication: Product used for unknown indication
     Dosage: 2 DOSAGE FORM, AT NIGHT
     Route: 048
     Dates: start: 20221208, end: 20230109
  2. CLOZAPINE [Suspect]
     Active Substance: CLOZAPINE
     Indication: Product used for unknown indication
     Dosage: UNK
     Route: 048
     Dates: start: 20221208, end: 20230109

REACTIONS (3)
  - Myocarditis [Recovering/Resolving]
  - Troponin increased [Recovering/Resolving]
  - Chest pain [Recovered/Resolved]
